FAERS Safety Report 7993755-0 (Version None)
Quarter: 2011Q4

REPORT INFORMATION
  Report Type: 
  Country: None (occurrence: None)
  Receive Date: 20111220
  Receipt Date: 20111207
  Transmission Date: 20120403
  Serious: Yes (Other)
  Sender: FDA-Public Use
  Company Number: US-RANBAXY-2011RR-51100

PATIENT
  Sex: Female

DRUGS (6)
  1. CIPROFLOXACIN [Suspect]
     Indication: INFECTION
     Dosage: UNK
     Route: 065
  2. PREDNISOLONE [Suspect]
     Indication: HYPERSENSITIVITY
  3. LEVAQUIN [Suspect]
     Indication: LOWER RESPIRATORY TRACT INFECTION BACTERIAL
     Dosage: 750 MG, QD
     Route: 048
     Dates: start: 20080624
  4. METHYLPREDNISOLONE [Suspect]
     Indication: SINUS POLYP
     Dosage: UNK
     Route: 065
  5. METHYLPREDNISOLONE [Suspect]
     Indication: HYPERSENSITIVITY
  6. PREDNISOLONE [Suspect]
     Indication: SINUS POLYP
     Dosage: UNK
     Route: 065

REACTIONS (5)
  - TENDONITIS [None]
  - MUSCLE ATROPHY [None]
  - TENDON PAIN [None]
  - PERIARTHRITIS [None]
  - TENDON RUPTURE [None]
